FAERS Safety Report 10626203 (Version 6)
Quarter: 2015Q1

REPORT INFORMATION
  Report Type: Report from Study
  Country: US (occurrence: US)
  Receive Date: 20141204
  Receipt Date: 20150204
  Transmission Date: 20150720
  Serious: Yes (Disabling, Other)
  Sender: FDA-Public Use
  Company Number: US-SA-2014SA165142

PATIENT
  Age: 68 Year
  Sex: Male
  Weight: 122.46 kg

DRUGS (2)
  1. AUBAGIO [Suspect]
     Active Substance: TERIFLUNOMIDE
     Indication: MULTIPLE SCLEROSIS
     Route: 048
     Dates: start: 201412
  2. AUBAGIO [Suspect]
     Active Substance: TERIFLUNOMIDE
     Indication: MULTIPLE SCLEROSIS
     Route: 048
     Dates: start: 20141103, end: 20141207

REACTIONS (5)
  - Wheelchair user [Recovering/Resolving]
  - Unevaluable event [Unknown]
  - Stress [Unknown]
  - Multiple sclerosis relapse [Not Recovered/Not Resolved]
  - Limb discomfort [Unknown]
